FAERS Safety Report 5541934-4 (Version None)
Quarter: 2007Q4

REPORT INFORMATION
  Report Type: 
  Country: None (occurrence: None)
  Receive Date: 20071210
  Receipt Date: 20071128
  Transmission Date: 20080405
  Serious: Yes (Death, Hospitalization, Other)
  Sender: FDA-Public Use
  Company Number: JP-ROCHE-528919

PATIENT
  Age: 61 Year
  Sex: Female

DRUGS (4)
  1. HORIZON [Suspect]
     Indication: DEPRESSION
     Route: 048
     Dates: start: 20061004, end: 20061016
  2. DOGMATYL [Suspect]
     Indication: DEPRESSION
     Route: 065
     Dates: start: 20061004
  3. PAXIL [Suspect]
     Indication: DEPRESSION
     Route: 048
     Dates: start: 20061004, end: 20061024
  4. AMOBAN [Concomitant]
     Indication: DEPRESSION

REACTIONS (5)
  - DIARRHOEA [None]
  - HEPATIC FUNCTION ABNORMAL [None]
  - NUTRITIONAL CONDITION ABNORMAL [None]
  - PANCREATITIS [None]
  - PNEUMONIA [None]
